FAERS Safety Report 6023556-4 (Version None)
Quarter: 2008Q4

REPORT INFORMATION
  Report Type: 
  Country: None (occurrence: None)
  Receive Date: 20081226
  Receipt Date: 20081226
  Transmission Date: 20090506
  Serious: Yes (Other)
  Sender: FDA-Public Use
  Company Number: None

PATIENT
  Age: 46 Year
  Sex: Male
  Weight: 88.4514 kg

DRUGS (1)
  1. VENTOLIN HFA [Suspect]
     Indication: ASTHMA
     Dosage: 2 PUFFS TWICE DAILY INHAL
     Route: 055
     Dates: start: 20080806, end: 20080901

REACTIONS (9)
  - HEADACHE [None]
  - IMPAIRED WORK ABILITY [None]
  - MIGRAINE [None]
  - NO THERAPEUTIC RESPONSE [None]
  - PALATAL DISORDER [None]
  - PRODUCT QUALITY ISSUE [None]
  - SINUS DISORDER [None]
  - SWELLING [None]
  - TENDERNESS [None]
